FAERS Safety Report 8233976 (Version 2)
Quarter: 2012Q4

REPORT INFORMATION
  Report Type: 
  Country: US (occurrence: US)
  Receive Date: 20111107
  Receipt Date: 20121107
  Transmission Date: 20130627
  Serious: Yes (Other)
  Sender: FDA-Public Use
  Company Number: US-AMGEN-USASP2011047004

PATIENT
  Age: 63 Year
  Sex: Female
  Weight: 82.09 kg

DRUGS (1)
  1. ENBREL [Suspect]
     Indication: RHEUMATOID ARTHRITIS
     Dosage: 50 mg, qwk
     Dates: start: 20110201

REACTIONS (2)
  - Urinary tract infection [Recovered/Resolved]
  - Sinusitis [Recovered/Resolved]
